FAERS Safety Report 9761045 (Version 2)
Quarter: 2014Q1

REPORT INFORMATION
  Report Type: Spontaneous
  Country: US (occurrence: US)
  Receive Date: 20131216
  Receipt Date: 20140207
  Transmission Date: 20141002
  Serious: Yes (Hospitalization)
  Sender: FDA-Public Use
  Company Number: US-PFIZER INC-2013356008

PATIENT
  Age: 32 Year
  Sex: Female

DRUGS (3)
  1. GEODON [Suspect]
     Indication: SCHIZOPHRENIA
     Dosage: 120 MG, 1X/DAY (QHS)
     Route: 048
  2. ERYTHROMYCIN [Suspect]
     Dosage: UNK
  3. MSO4 [Suspect]
     Dosage: UNK

REACTIONS (2)
  - Cardiac arrest [Recovered/Resolved]
  - Drug hypersensitivity [Unknown]
